FAERS Safety Report 10008176 (Version 2)
Quarter: 2014Q2

REPORT INFORMATION
  Report Type: Spontaneous
  Country: IT (occurrence: IT)
  Receive Date: 20140313
  Receipt Date: 20140529
  Transmission Date: 20141212
  Serious: Yes (Hospitalization)
  Sender: FDA-Public Use
  Company Number: IT-MYLANLABS-2014S1004862

PATIENT
  Age: 85 Year
  Sex: Male

DRUGS (5)
  1. ALPRAZOLAM [Suspect]
     Indication: SEDATION
     Dosage: 40 GTT TOTAL
     Route: 048
     Dates: start: 20140205, end: 20140205
  2. GABAPENTIN [Suspect]
     Indication: SEDATION
     Dosage: 200 MG TOTAL
     Route: 048
     Dates: start: 20140205, end: 20140205
  3. SEROQUEL [Suspect]
     Indication: SEDATION
     Dosage: 25 MG DAILY
     Route: 048
     Dates: start: 20140204, end: 20140205
  4. LOBIVON [Concomitant]
     Indication: PRODUCT USED FOR UNKNOWN INDICATION
     Dosage: 5 MG
  5. MADOPAR [Concomitant]
     Indication: PARKINSONISM

REACTIONS (3)
  - Erythema [Recovering/Resolving]
  - Sopor [Recovering/Resolving]
  - Off label use [Recovering/Resolving]
